FAERS Safety Report 7996353-8 (Version None)
Quarter: 2011Q4

REPORT INFORMATION
  Report Type: 
  Country: None (occurrence: None)
  Receive Date: 20111220
  Receipt Date: 20111215
  Transmission Date: 20120403
  Serious: Yes (Hospitalization)
  Sender: FDA-Public Use
  Company Number: US-GILEAD-2011-0048244

PATIENT
  Age: 74 Year
  Sex: Female

DRUGS (6)
  1. REVATIO [Concomitant]
  2. OXYGEN [Concomitant]
  3. COUMADIN [Concomitant]
  4. LETAIRIS [Suspect]
     Indication: PULMONARY ARTERIAL HYPERTENSION
     Dosage: UNK
  5. DIGOXIN [Concomitant]
  6. TYVASO [Suspect]
     Indication: PULMONARY ARTERIAL HYPERTENSION
     Dosage: 54 ?G, UNK
     Route: 050
     Dates: start: 20091105

REACTIONS (4)
  - LIVER FUNCTION TEST ABNORMAL [None]
  - ASTHENIA [None]
  - UNEVALUABLE EVENT [None]
  - DEHYDRATION [None]
